FAERS Safety Report 8309690-4 (Version None)
Quarter: 2012Q2

REPORT INFORMATION
  Report Type: 
  Country: None (occurrence: None)
  Receive Date: 20120423
  Receipt Date: 20120412
  Transmission Date: 20120825
  Serious: Yes (Other)
  Sender: FDA-Public Use
  Company Number: AUR-APL-2012-01732

PATIENT
  Age: 61 Year
  Sex: Male

DRUGS (7)
  1. NADROPARN [Suspect]
     Indication: DEEP VEIN THROMBOSIS
     Dosage: (5700 IU,1 D),SUBCUTANEOUS
     Route: 058
  2. FLUOROURACIL [Concomitant]
  3. LEVOFLOXACIN [Suspect]
     Indication: BACTERIAL INFECTION
     Dosage: (500 MG,1 D),ORAL
     Route: 048
  4. GLYBURIDE AND METFORMIN HYDROCHLORIDE [Suspect]
     Indication: TYPE 2 DIABETES MELLITUS
     Dosage: 400MG/2.5MG (2 IN 1 D),ORAL
     Route: 048
  5. CISPLATIN [Concomitant]
  6. CETUXIMAB [Concomitant]
  7. HYDROMORPHONE HCL [Suspect]
     Indication: PRODUCT USED FOR UNKNOWN INDICATION
     Dosage: 16 MG (16 MG,1 IN 1 D),ORAL
     Route: 048

REACTIONS (3)
  - DRUG INTERACTION [None]
  - UNRESPONSIVE TO STIMULI [None]
  - HYPOGLYCAEMIA [None]
